FAERS Safety Report 8206606-6 (Version None)
Quarter: 2012Q1

REPORT INFORMATION
  Report Type: 
  Country: None (occurrence: None)
  Receive Date: 20120313
  Receipt Date: 20120307
  Transmission Date: 20120608
  Serious: Yes (Death, Hospitalization, Other)
  Sender: FDA-Public Use
  Company Number: FR-AMGEN-FRASP2012003760

PATIENT
  Age: 45 Year
  Sex: Male
  Weight: 102 kg

DRUGS (5)
  1. NEULASTA [Suspect]
     Indication: NEUTROPENIA
     Dosage: 6 MG, ONE TIME DOSE
     Route: 042
     Dates: start: 20111201, end: 20111201
  2. CYTARABINE [Concomitant]
     Indication: ACUTE MYELOID LEUKAEMIA
     Dosage: 200 MG/M2, UNK
     Route: 042
  3. DAUNORUBICIN HCL [Concomitant]
     Indication: ACUTE MYELOID LEUKAEMIA
     Dosage: 60 MG/M2, UNK
     Dates: start: 20111112
  4. NSAID'S [Concomitant]
  5. ACETAMINOPHEN [Concomitant]
     Dosage: 500 MG, QID

REACTIONS (12)
  - PURPURA [None]
  - WHITE BLOOD CELL COUNT INCREASED [None]
  - CARDIOMEGALY [None]
  - PLEURAL EFFUSION [None]
  - BLAST CELL COUNT INCREASED [None]
  - DISSEMINATED INTRAVASCULAR COAGULATION [None]
  - PNEUMONIA [None]
  - ABDOMINAL DISTENSION [None]
  - BLAST CELL CRISIS [None]
  - THROMBOCYTOPENIA [None]
  - CEREBRAL HAEMORRHAGE [None]
  - CARDIAC ARREST [None]
